FAERS Safety Report 13709353 (Version 1)
Quarter: 2017Q3

REPORT INFORMATION
  Report Type: Spontaneous
  Country: NL (occurrence: NL)
  Receive Date: 20170703
  Receipt Date: 20170703
  Transmission Date: 20171127
  Serious: Yes (Other)
  Sender: FDA-Public Use
  Company Number: NL-CHARTWELL PHARMA-2022846

PATIENT
  Age: 51 Year
  Sex: Female

DRUGS (2)
  1. METFORMIN HYDROCHLORIDE. [Suspect]
     Active Substance: METFORMIN HYDROCHLORIDE
     Indication: PRODUCT USED FOR UNKNOWN INDICATION
  2. EVEROLIMUS [Interacting]
     Active Substance: EVEROLIMUS

REACTIONS (3)
  - Drug interaction [Unknown]
  - Circulatory collapse [Unknown]
  - Toxicity to various agents [Unknown]
